FAERS Safety Report 5818930-2 (Version None)
Quarter: 2008Q3

REPORT INFORMATION
  Report Type: 
  Country: None (occurrence: None)
  Receive Date: 20080723
  Receipt Date: 20080723
  Transmission Date: 20090109
  Serious: Yes (Death, Hospitalization, Disabling)
  Sender: FDA-Public Use
  Company Number: None

PATIENT
  Age: 82 Year
  Sex: Male
  Weight: 87.0906 kg

DRUGS (1)
  1. HEPARIN [Suspect]
     Dates: start: 20080124

REACTIONS (1)
  - RESPIRATORY ARREST [None]
